FAERS Safety Report 4908706-2 (Version None)
Quarter: 2006Q1

REPORT INFORMATION
  Report Type: 
  Country: None (occurrence: None)
  Receive Date: 20060210
  Receipt Date: 20051025
  Transmission Date: 20060701
  Serious: No
  Sender: FDA-Public Use
  Company Number: US-GLAXOSMITHKLINE-A0579568A

PATIENT
  Age: 52 Year
  Sex: Male

DRUGS (5)
  1. PAXIL CR [Suspect]
     Dosage: 12.5MG PER DAY
     Route: 048
     Dates: start: 20050811, end: 20050827
  2. IBUPROFEN [Concomitant]
  3. AMBIEN [Concomitant]
  4. BENICAR [Concomitant]
  5. XANAX [Concomitant]

REACTIONS (1)
  - ABNORMAL DREAMS [None]
